FAERS Safety Report 9011556 (Version 2)
Quarter: 2013Q1

REPORT INFORMATION
  Report Type: Spontaneous
  Country: US (occurrence: US)
  Receive Date: 20130108
  Receipt Date: 20130128
  Transmission Date: 20140127
  Serious: Yes (Hospitalization, Other)
  Sender: FDA-Public Use
  Company Number: US-PFIZER INC-2013006909

PATIENT
  Sex: Female

DRUGS (3)
  1. LYRICA [Suspect]
     Indication: PAIN
     Dosage: UNK
  2. MOTRIN [Suspect]
     Indication: PAIN
     Dosage: UNK
  3. ASPIRIN [Suspect]
     Indication: PAIN
     Dosage: UNK

REACTIONS (2)
  - Incorrect dose administered [Unknown]
  - Ulcer [Unknown]
